FAERS Safety Report 8634031 (Version 2)
Quarter: 2013Q3

REPORT INFORMATION
  Report Type: Spontaneous
  Country: US (occurrence: US)
  Receive Date: 20120626
  Receipt Date: 20130718
  Transmission Date: 20140515
  Serious: Yes (Death, Disabling, Other)
  Sender: FDA-Public Use
  Company Number: US-ASTRAZENECA-2012SE35938

PATIENT
  Age: 46 Year
  Sex: Female

DRUGS (7)
  1. NEXIUM [Suspect]
     Indication: GASTROOESOPHAGEAL REFLUX DISEASE
     Dosage: ONCE A DAY
     Route: 048
     Dates: start: 2000
  2. NEXIUM [Suspect]
     Indication: DYSPEPSIA
     Dosage: ONCE A DAY
     Route: 048
     Dates: start: 2000
  3. PRILOSEC [Suspect]
     Route: 048
  4. DEMORAL [Concomitant]
  5. VALIUM [Concomitant]
  6. OXYCONTIN [Concomitant]
  7. LIVER DETOX [Concomitant]

REACTIONS (10)
  - Death [Fatal]
  - Pelvic fracture [Unknown]
  - Hip deformity [Unknown]
  - Musculoskeletal discomfort [Unknown]
  - Accident at work [Unknown]
  - Tendon disorder [Unknown]
  - Osteoporosis [Unknown]
  - Foot fracture [Unknown]
  - Depression [Unknown]
  - Hepatitis [Unknown]
